FAERS Safety Report 6195719-9 (Version None)
Quarter: 2009Q2

REPORT INFORMATION
  Report Type: 
  Country: None (occurrence: None)
  Receive Date: 20090520
  Receipt Date: 20071108
  Transmission Date: 20091009
  Serious: Yes (Hospitalization, Other)
  Sender: FDA-Public Use
  Company Number: US-ASTRAZENECA-2007UW03857

PATIENT
  Age: 38 Year
  Sex: Female
  Weight: 127.9 kg

DRUGS (45)
  1. SEROQUEL [Suspect]
     Indication: SLEEP DISORDER
     Route: 048
     Dates: start: 19970101, end: 20070701
  2. SEROQUEL [Suspect]
     Dosage: 100 MG TO 800 MG
     Route: 048
     Dates: start: 19990201, end: 20010719
  3. SEROQUEL [Suspect]
     Dosage: 200 MG TO 900 MG
     Route: 048
     Dates: start: 20010906, end: 20070507
  4. ZYPREXA [Suspect]
     Dates: end: 20000101
  5. RISPERDAL [Suspect]
     Dates: end: 20030101
  6. TRAMADOL HYDROCHLORIDE AND ACETAMINOPHEN [Concomitant]
     Dosage: 37.5 MG/325 MG
     Route: 065
  7. SPIRONOLACTONE [Concomitant]
     Route: 065
  8. LYRICA [Concomitant]
     Route: 065
  9. CARISOPRODOL [Concomitant]
     Route: 065
  10. AMBIEN CR [Concomitant]
     Dosage: 10 MG - 20 MG
     Route: 048
  11. KLONOPIN [Concomitant]
     Route: 048
  12. ELAVIL [Concomitant]
     Route: 065
  13. SULFAMETHOXAZOLE AND TRIMETHOPRIM [Concomitant]
     Route: 065
  14. METHADOSE [Concomitant]
     Route: 065
  15. NAPROXEN SODIUM [Concomitant]
     Route: 065
  16. HYDROXYZINE HCL [Concomitant]
     Route: 065
  17. ESTRASORB TOPICAL EMULSION [Concomitant]
     Route: 065
  18. RESTORIL [Concomitant]
     Dosage: 15 MG - 30G AT NIGHT
     Route: 048
  19. LIDODERM [Concomitant]
     Route: 065
  20. TRILEPTAL [Concomitant]
     Route: 065
  21. MAXALT [Concomitant]
     Route: 065
  22. TOBRADEX OPTH OINT [Concomitant]
     Route: 065
  23. ZELNORM [Concomitant]
     Route: 065
  24. ABILIFY [Concomitant]
     Route: 065
  25. PREDNISONE [Concomitant]
     Route: 065
  26. FENTANYL [Concomitant]
     Route: 065
  27. CENESTIN [Concomitant]
     Route: 065
  28. PRECOSE [Concomitant]
     Route: 065
  29. PROMETHAZINE [Concomitant]
     Route: 065
  30. REMERON [Concomitant]
     Dosage: 30 MG - 60 MG
     Route: 048
  31. MIRALAX [Concomitant]
     Route: 065
  32. ALBUTEROL [Concomitant]
     Route: 065
  33. BECONASE [Concomitant]
     Route: 065
  34. VITAMIN B-12 [Concomitant]
     Route: 065
  35. LORTAB [Concomitant]
     Dosage: 7.5 MG/500 MG - 10 MG/500 MG
     Route: 065
  36. EFFEXOR XR [Concomitant]
     Dosage: 75 MG - 150 MG
     Route: 048
  37. XANAX [Concomitant]
     Dosage: 0.5 MG - 1 MG
     Route: 048
  38. DIAZEPAM [Concomitant]
     Route: 048
  39. ATIVAN [Concomitant]
     Route: 048
  40. PAXIL [Concomitant]
     Route: 065
  41. NAPROSYN [Concomitant]
     Dosage: 375 THREE TIMES A DAY
     Route: 065
  42. GEODON [Concomitant]
     Route: 048
  43. DEPAKOTE [Concomitant]
     Dosage: 250 MG - 1500 MG
     Route: 048
  44. OXYCODONE HCL AND ACETAMINOPHEN [Concomitant]
     Dosage: 8-325 MG
     Route: 065
  45. MEPROZINE [Concomitant]
     Dosage: 50 MG/25 MG
     Route: 065

REACTIONS (6)
  - BIPOLAR DISORDER [None]
  - GASTROENTERITIS [None]
  - PANIC DISORDER [None]
  - SCHIZOAFFECTIVE DISORDER [None]
  - SUICIDE ATTEMPT [None]
  - TYPE 2 DIABETES MELLITUS [None]
